FAERS Safety Report 4418267-2 (Version None)
Quarter: 2004Q3

REPORT INFORMATION
  Report Type: 
  Country: None (occurrence: None)
  Receive Date: 20040809
  Receipt Date: 20040112
  Transmission Date: 20050211
  Serious: No
  Sender: FDA-Public Use
  Company Number: US-GLAXOSMITHKLINE-A0494734A

PATIENT
  Age: 19 Year
  Sex: Male

DRUGS (3)
  1. PAXIL CR [Suspect]
     Indication: DEPRESSION
     Dosage: 12.5MG AT NIGHT
     Route: 048
     Dates: start: 20030513
  2. ZYPREXA [Suspect]
     Indication: ILL-DEFINED DISORDER
     Dosage: 5MG AT NIGHT
     Route: 048
     Dates: start: 20030513
  3. WELLBUTRIN SR [Concomitant]
     Indication: DEPRESSION
     Dosage: 150MG IN THE MORNING
     Route: 048
     Dates: start: 20030515

REACTIONS (4)
  - ANHEDONIA [None]
  - DRUG INEFFECTIVE [None]
  - LETHARGY [None]
  - SEDATION [None]
